FAERS Safety Report 5918093-9 (Version None)
Quarter: 2008Q4

REPORT INFORMATION
  Report Type: 
  Country: None (occurrence: None)
  Receive Date: 20081014
  Receipt Date: 20081003
  Transmission Date: 20090506
  Serious: Yes (Other)
  Sender: FDA-Public Use
  Company Number: BR-PFIZER INC-2008084404

PATIENT
  Age: 43 Year
  Sex: Male

DRUGS (1)
  1. LOMOTIL [Suspect]
     Indication: GASTROINTESTINAL DISORDER
     Route: 048

REACTIONS (2)
  - EATING DISORDER [None]
  - WEIGHT DECREASED [None]
